FAERS Safety Report 17035291 (Version 2)
Quarter: 2019Q4

REPORT INFORMATION
  Report Type: Spontaneous
  Country: US (occurrence: US)
  Receive Date: 20191115
  Receipt Date: 20191125
  Transmission Date: 20200122
  Serious: No
  Sender: FDA-Public Use
  Company Number: US-ASTRAZENECA-2019SF62233

PATIENT
  Age: 44 Year
  Sex: Female

DRUGS (1)
  1. NEXIUM 24HR [Suspect]
     Active Substance: ESOMEPRAZOLE MAGNESIUM
     Dosage: 1 CAPSULE, TWICE A DAY, 1 IN THE MORNING AND 1 AT NIGHT
     Route: 048

REACTIONS (1)
  - Intentional product misuse [Unknown]
